FAERS Safety Report 4349913-X (Version None)
Quarter: 2004Q2

REPORT INFORMATION
  Report Type: 
  Country: None (occurrence: None)
  Receive Date: 20040428
  Receipt Date: 20040419
  Transmission Date: 20050107
  Serious: Yes (Life-Threatening, Hospitalization)
  Sender: FDA-Public Use
  Company Number: WAES 0404ESP00007

PATIENT
  Age: 75 Year
  Sex: Female

DRUGS (4)
  1. VIOXX [Suspect]
     Indication: BARRETT'S OESOPHAGUS
     Dosage: 25 MG/DAILY
     Dates: start: 20020626, end: 20020725
  2. ESCIN [Concomitant]
  3. NIMODIPINE [Concomitant]
  4. OMEPRAZOLE [Concomitant]

REACTIONS (2)
  - HAEMATOMA [None]
  - HAEMORRHAGIC STROKE [None]
